FAERS Safety Report 10049674 (Version 1)
Quarter: 2014Q2

REPORT INFORMATION
  Report Type: Spontaneous
  Country: FR (occurrence: FR)
  Receive Date: 20140401
  Receipt Date: 20140401
  Transmission Date: 20141212
  Serious: Yes (Life-Threatening, Hospitalization)
  Sender: FDA-Public Use
  Company Number: FR-ROCHE-1368280

PATIENT
  Age: 49 Year
  Sex: Female

DRUGS (5)
  1. AVASTIN [Suspect]
     Indication: PRODUCT USED FOR UNKNOWN INDICATION
     Route: 065
     Dates: start: 201401
  2. TAXOL [Suspect]
     Indication: PRODUCT USED FOR UNKNOWN INDICATION
     Route: 065
     Dates: start: 201401
  3. ACIDE FOLINIQUE [Suspect]
     Indication: PRODUCT USED FOR UNKNOWN INDICATION
     Route: 065
     Dates: start: 20111028
  4. OXALIPLATIN [Suspect]
     Indication: PRODUCT USED FOR UNKNOWN INDICATION
     Route: 065
     Dates: start: 20110128
  5. FLUOROURACIL [Suspect]
     Indication: PRODUCT USED FOR UNKNOWN INDICATION
     Route: 065
     Dates: start: 20110128

REACTIONS (10)
  - Haemolytic anaemia [Recovering/Resolving]
  - Renal failure acute [Unknown]
  - Leukocytosis [Unknown]
  - Coagulation factor decreased [Recovered/Resolved]
  - Coombs test positive [Unknown]
  - Thrombocytopenia [Unknown]
  - Myalgia [Unknown]
  - Pyrexia [Recovered/Resolved]
  - Nausea [Unknown]
  - Hypertension [Unknown]
